FAERS Safety Report 22034945 (Version 5)
Quarter: 2023Q2

REPORT INFORMATION
  Report Type: Report from Study
  Country: KR (occurrence: KR)
  Receive Date: 20230224
  Receipt Date: 20230410
  Transmission Date: 20230721
  Serious: Yes (Hospitalization)
  Sender: FDA-Public Use
  Company Number: KR-BEIGENE AUS PTY LTD-BGN-2023-001172

PATIENT
  Age: 74 Year
  Sex: Male
  Weight: 60.75 kg

DRUGS (10)
  1. ZANIDATAMAB [Suspect]
     Active Substance: ZANIDATAMAB
     Indication: Adenocarcinoma gastric
     Dosage: FIRST CYCLE 8 MG/KG SUBSEQUENT, Q3W CYCLE 6MG/KG
     Route: 042
     Dates: start: 20221124
  2. CAPECITABINE [Suspect]
     Active Substance: CAPECITABINE
     Indication: Adenocarcinoma gastric
     Dosage: 1000 MG/M2, Q3W
     Route: 048
     Dates: start: 20221124, end: 20230210
  3. CAPECITABINE [Suspect]
     Active Substance: CAPECITABINE
     Dosage: UNK
     Route: 048
     Dates: start: 20230310
  4. TAMSULOSIN HYDROCHLORIDE [Concomitant]
     Active Substance: TAMSULOSIN HYDROCHLORIDE
     Indication: Product used for unknown indication
     Dosage: UNK
     Route: 065
     Dates: start: 20221124
  5. ESOMEPRAZOLE [Concomitant]
     Active Substance: ESOMEPRAZOLE
     Indication: Product used for unknown indication
     Dosage: UNK
     Route: 065
     Dates: start: 20221108
  6. REBAMIPIDE [Concomitant]
     Active Substance: REBAMIPIDE
     Indication: Product used for unknown indication
     Dosage: UNK
     Route: 065
     Dates: start: 20221108
  7. LOPAINE [Concomitant]
     Indication: Prophylaxis
     Dosage: 4 MG, BID
     Route: 048
     Dates: start: 20221124, end: 20221130
  8. TRIGEL [Concomitant]
     Indication: Product used for unknown indication
     Dosage: UNK
     Route: 065
     Dates: start: 20221108
  9. TRIMEBUTINE MALEATE [Concomitant]
     Active Substance: TRIMEBUTINE MALEATE
     Indication: Product used for unknown indication
     Dosage: UNK
     Route: 065
     Dates: start: 20221108
  10. MEGESTROL ACETATE [Concomitant]
     Active Substance: MEGESTROL ACETATE
     Indication: Product used for unknown indication
     Dosage: UNK
     Route: 065
     Dates: start: 20221108

REACTIONS (1)
  - Pneumonitis [Recovered/Resolved]

NARRATIVE: CASE EVENT DATE: 20230217
